FAERS Safety Report 7786276-1 (Version None)
Quarter: 2011Q3

REPORT INFORMATION
  Report Type: 
  Country: None (occurrence: None)
  Receive Date: 20110929
  Receipt Date: 20110915
  Transmission Date: 20111222
  Serious: Yes (Other)
  Sender: FDA-Public Use
  Company Number: PHHY2011BR82500

PATIENT
  Age: 60 Year
  Sex: Female

DRUGS (5)
  1. RASILEZ [Suspect]
     Dosage: 150 MG/DAY
  2. ASPIRIN [Concomitant]
     Dosage: 100 MG,
  3. CARVEDILOL [Concomitant]
     Dosage: 12.5 MG, BID
  4. RASILEZ [Suspect]
     Indication: RENAL FAILURE CHRONIC
     Dosage: 300 MG/DAY
  5. SPIRONOLACTONE [Concomitant]
     Dosage: 25 MG,

REACTIONS (7)
  - MYOCARDIAL INFARCTION [None]
  - DIASTOLIC DYSFUNCTION [None]
  - LEFT VENTRICULAR HYPERTROPHY [None]
  - HYPOTENSION [None]
  - URINARY TRACT INFECTION [None]
  - RIGHT VENTRICULAR HYPERTROPHY [None]
  - VENTRICULAR HYPOKINESIA [None]
